FAERS Safety Report 17362949 (Version 2)
Quarter: 2020Q1

REPORT INFORMATION
  Report Type: Spontaneous
  Country: US (occurrence: US)
  Receive Date: 20200203
  Receipt Date: 20200226
  Transmission Date: 20200409
  Serious: No
  Sender: FDA-Public Use
  Company Number: US-009507513-2001USA011451

PATIENT
  Age: 28 Year
  Sex: Female
  Weight: 107.94 kg

DRUGS (2)
  1. NEXPLANON [Suspect]
     Active Substance: ETONOGESTREL
     Dosage: 1 IMPLANT INTO THE LEFT ARM
     Route: 059
     Dates: start: 20190913, end: 20200130
  2. NEXPLANON [Suspect]
     Active Substance: ETONOGESTREL
     Dosage: 1 IMPLANT INTO LEFT ARM IN DIFFERENT LOCATION
     Route: 059
     Dates: start: 20200130

REACTIONS (3)
  - Complication associated with device [Recovered/Resolved]
  - No adverse event [Unknown]
  - Device breakage [Recovered/Resolved]

NARRATIVE: CASE EVENT DATE: 2019
